FAERS Safety Report 6616077-9 (Version None)
Quarter: 2010Q1

REPORT INFORMATION
  Report Type: 
  Country: None (occurrence: None)
  Receive Date: 20100305
  Receipt Date: 20100222
  Transmission Date: 20100710
  Serious: Yes (Hospitalization, Other)
  Sender: FDA-Public Use
  Company Number: PHHY2009JP58782

PATIENT
  Age: 58 Year
  Sex: Male

DRUGS (4)
  1. DIOVAN [Suspect]
     Indication: HYPERTENSION
     Dosage: 80 MG DAILY
     Route: 048
     Dates: end: 20090618
  2. SLOW-K [Suspect]
     Route: 048
  3. SPIRONOLACTONE [Suspect]
     Dosage: 50 MG DAILY
     Route: 048
     Dates: end: 20090618
  4. AMLODIPINE BESYLATE [Concomitant]
     Dosage: 5 MG, UNK
     Route: 048

REACTIONS (7)
  - ADRENALECTOMY [None]
  - BLOOD ALDOSTERONE INCREASED [None]
  - BLOOD CREATININE INCREASED [None]
  - BLOOD PRESSURE DIASTOLIC DECREASED [None]
  - HYPERKALAEMIA [None]
  - HYPONATRAEMIA [None]
  - PRIMARY HYPERALDOSTERONISM [None]
